FAERS Safety Report 12616901 (Version 3)
Quarter: 2017Q1

REPORT INFORMATION
  Report Type: Report from Study
  Country: CA (occurrence: CA)
  Receive Date: 20160802
  Receipt Date: 20170127
  Transmission Date: 20170428
  Serious: Yes (Hospitalization)
  Sender: FDA-Public Use
  Company Number: PHHY2016CA104108

PATIENT
  Age: 79 Year
  Sex: Female
  Weight: 69.7 kg

DRUGS (4)
  1. EXJADE [Suspect]
     Active Substance: DEFERASIROX
     Indication: PRIMARY MYELOFIBROSIS
     Route: 048
     Dates: start: 2014
  2. KEFLEX [Suspect]
     Active Substance: CEPHALEXIN
     Indication: GROIN INFECTION
     Route: 065
     Dates: start: 20160624
  3. KEFLEX [Suspect]
     Active Substance: CEPHALEXIN
     Indication: INGUINAL MASS
  4. VITAMIN D [Suspect]
     Active Substance: CHOLECALCIFEROL
     Indication: SUPPLEMENTATION THERAPY
     Route: 048
     Dates: start: 2014

REACTIONS (5)
  - Sinus bradycardia [Recovered/Resolved]
  - Electrocardiogram T wave abnormal [Unknown]
  - Urinary tract infection [Not Recovered/Not Resolved]
  - Myocardial ischaemia [Unknown]
  - Ventricular extrasystoles [Unknown]

NARRATIVE: CASE EVENT DATE: 2015
